FAERS Safety Report 21146869 (Version 2)
Quarter: 2022Q3

REPORT INFORMATION
  Report Type: Other
  Country: CN (occurrence: None)
  Receive Date: 20220729
  Receipt Date: 20220802
  Transmission Date: 20221027
  Serious: Yes (Other)
  Sender: FDA-Public Use
  Company Number: CN-ROCHE-3148335

PATIENT
  Age: 35 Year
  Sex: Female

DRUGS (8)
  1. RITUXIMAB [Suspect]
     Active Substance: RITUXIMAB
     Indication: Pemphigus
     Route: 065
     Dates: start: 201907
  2. RITUXIMAB [Suspect]
     Active Substance: RITUXIMAB
     Route: 065
     Dates: start: 20190904
  3. RITUXIMAB [Suspect]
     Active Substance: RITUXIMAB
     Route: 065
     Dates: start: 20191212
  4. METHYLPREDNISOLONE [Concomitant]
     Active Substance: METHYLPREDNISOLONE
     Indication: Pemphigus
     Dosage: 12 MG/D WAS MAINTAINED FOR TWO MONTHS AFTER DISCHARGE
     Dates: start: 2017
  5. METHYLPREDNISOLONE [Concomitant]
     Active Substance: METHYLPREDNISOLONE
     Dates: start: 2019
  6. METHYLPREDNISOLONE [Concomitant]
     Active Substance: METHYLPREDNISOLONE
     Dosage: THEN 36 MG/WEEK WAS RECEIVED
     Dates: start: 2020, end: 2021
  7. AZATHIOPRINE [Concomitant]
     Active Substance: AZATHIOPRINE
     Indication: Pemphigus
     Dates: start: 2019
  8. THALIDOMIDE [Concomitant]
     Active Substance: THALIDOMIDE
     Indication: Pemphigus
     Dates: start: 2020

REACTIONS (2)
  - Bowen^s disease [Unknown]
  - Papilloma viral infection [Unknown]
